FAERS Safety Report 4788553-5 (Version None)
Quarter: 2005Q4

REPORT INFORMATION
  Report Type: 
  Country: None (occurrence: None)
  Receive Date: 20051005
  Receipt Date: 20051005
  Transmission Date: 20060501
  Serious: Yes (Hospitalization)
  Sender: FDA-Public Use
  Company Number: None

PATIENT
  Age: 65 Year
  Sex: Male
  Weight: 71 kg

DRUGS (3)
  1. CYCLOSPORINE [Suspect]
     Indication: CHRONIC LYMPHOCYTIC LEUKAEMIA
     Dosage: 210 MG IV Q24 H
     Route: 042
     Dates: start: 20050221, end: 20050223
  2. BACTRIM [Suspect]
     Indication: INFECTION PROPHYLAXIS
     Dosage: 2DS BID
     Dates: start: 20050214, end: 20050224
  3. BACTRIM [Suspect]
     Indication: PNEUMOCYSTIS JIROVECI PNEUMONIA
     Dosage: 2DS BID
     Dates: start: 20050214, end: 20050224

REACTIONS (3)
  - BLOOD CREATININE INCREASED [None]
  - LETHARGY [None]
  - MENTAL STATUS CHANGES [None]
